FAERS Safety Report 4487098-X (Version None)
Quarter: 2004Q4

REPORT INFORMATION
  Report Type: 
  Country: None (occurrence: None)
  Receive Date: 20041027
  Receipt Date: 20041018
  Transmission Date: 20050328
  Serious: Yes (Other)
  Sender: FDA-Public Use
  Company Number: GB-GLAXOSMITHKLINE-B0348594A

PATIENT
  Age: 29 Year
  Sex: Male

DRUGS (2)
  1. TRIZIVIR [Suspect]
     Indication: HIV INFECTION
     Dosage: 1TAB UNKNOWN
     Route: 048
     Dates: start: 20020101, end: 20040915
  2. ANTIHEMOPHILIC FACTOR (HUMAN) [Concomitant]
     Indication: FACTOR VIII DEFICIENCY
     Dosage: 3U UNKNOWN
     Route: 042

REACTIONS (2)
  - APLASIA PURE RED CELL [None]
  - BONE MARROW DISORDER [None]
